FAERS Safety Report 17774067 (Version 1)
Quarter: 2020Q2

REPORT INFORMATION
  Report Type: Spontaneous
  Country: US (occurrence: US)
  Receive Date: 20200513
  Receipt Date: 20200513
  Transmission Date: 20200714
  Serious: No
  Sender: FDA-Public Use
  Company Number: US-JNJFOC-20200501966

PATIENT
  Sex: Female

DRUGS (1)
  1. PEPCID [Suspect]
     Active Substance: FAMOTIDINE
     Indication: HYPERSENSITIVITY
     Dosage: 4 PILLS
     Route: 065

REACTIONS (1)
  - Incorrect dose administered [Unknown]
